FAERS Safety Report 4552161-1 (Version None)
Quarter: 2004Q4

REPORT INFORMATION
  Report Type: 
  Country: None (occurrence: None)
  Receive Date: 20041217
  Receipt Date: 20040722
  Transmission Date: 20050328
  Serious: No
  Sender: FDA-Public Use
  Company Number: 2004BP05978BP

PATIENT
  Sex: Male

DRUGS (8)
  1. SPIRIVA [Suspect]
     Indication: CHRONIC OBSTRUCTIVE AIRWAYS DISEASE
     Dosage: 18 MCG (18 MCG), IH
     Route: 055
     Dates: start: 20040624
  2. NETTLES NUT [Suspect]
     Dates: start: 20040721
  3. PREDNISONE [Concomitant]
  4. THEO-DUR [Concomitant]
  5. SEREVENT [Concomitant]
  6. AZMACORT [Concomitant]
  7. NOT SPECIFIED DRUG FOR HTN [Concomitant]
  8. SAW PALMETTO (SERENOA REPENS) [Concomitant]

REACTIONS (2)
  - POLLAKIURIA [None]
  - STOMACH DISCOMFORT [None]
